FAERS Safety Report 4375424-1 (Version None)
Quarter: 2004Q2

REPORT INFORMATION
  Report Type: 
  Country: None (occurrence: None)
  Receive Date: 20040610
  Receipt Date: 20031009
  Transmission Date: 20050107
  Serious: Yes (Other)
  Sender: FDA-Public Use
  Company Number: 200319945GDDC

PATIENT
  Age: 37 Year
  Sex: Female

DRUGS (5)
  1. CLEXANE [Suspect]
     Indication: DEEP VENOUS THROMBOSIS PROPHYLAXIS
     Route: 058
     Dates: start: 20030924, end: 20031005
  2. CLEXANE [Suspect]
     Indication: THROMBOSIS PROPHYLAXIS
     Route: 058
     Dates: start: 20030924, end: 20031005
  3. GONADOTROPINS [Concomitant]
     Indication: ANTICOAGULANT THERAPY
  4. ASPIRIN [Concomitant]
     Indication: IN VITRO FERTILISATION
     Route: 048
  5. FOLIC ACID [Concomitant]
     Route: 048

REACTIONS (6)
  - CAESAREAN SECTION [None]
  - DRUG EXPOSURE DURING PREGNANCY [None]
  - DRUG HYPERSENSITIVITY [None]
  - PREMATURE BABY [None]
  - PREMATURE RUPTURE OF MEMBRANES [None]
  - SKIN REACTION [None]
